FAERS Safety Report 7952005-1 (Version None)
Quarter: 2011Q4

REPORT INFORMATION
  Report Type: 
  Country: None (occurrence: None)
  Receive Date: 20111201
  Receipt Date: 20111122
  Transmission Date: 20120403
  Serious: Yes (Other)
  Sender: FDA-Public Use
  Company Number: US-ASTRAZENECA-2006UW15010

PATIENT
  Age: 43 Year
  Sex: Male
  Weight: 104.8 kg

DRUGS (4)
  1. ATENOLOL [Concomitant]
  2. PRILOSEC [Suspect]
     Route: 048
  3. NEXIUM [Suspect]
     Indication: GASTROOESOPHAGEAL REFLUX DISEASE
     Route: 048
     Dates: start: 20060101
  4. SYMBICORT [Suspect]
     Route: 055

REACTIONS (10)
  - WEIGHT INCREASED [None]
  - POST PROCEDURAL HAEMATOMA [None]
  - SLEEP APNOEA SYNDROME [None]
  - DRUG DOSE OMISSION [None]
  - NECK PAIN [None]
  - EXTRAVASATION [None]
  - HYPERTENSION [None]
  - OFF LABEL USE [None]
  - ROTATOR CUFF REPAIR [None]
  - DRUG INEFFECTIVE [None]
